FAERS Safety Report 6157601-2 (Version None)
Quarter: 2009Q2

REPORT INFORMATION
  Report Type: 
  Country: None (occurrence: None)
  Receive Date: 20090414
  Receipt Date: 20090401
  Transmission Date: 20091009
  Serious: Yes (Hospitalization)
  Sender: FDA-Public Use
  Company Number: 233578K09USA

PATIENT
  Age: 34 Year
  Sex: Female
  Weight: 96 kg

DRUGS (2)
  1. REBIF [Suspect]
     Indication: MULTIPLE SCLEROSIS
     Dates: start: 20080416, end: 20080416
  2. REBIF [Suspect]
     Indication: MULTIPLE SCLEROSIS
     Dates: end: 20090201

REACTIONS (6)
  - CERVICAL INCOMPETENCE [None]
  - DRUG EXPOSURE DURING PREGNANCY [None]
  - INJECTION SITE PAIN [None]
  - PREGNANCY [None]
  - PREMATURE LABOUR [None]
  - SMALL FOR DATES BABY [None]
